FAERS Safety Report 25424651 (Version 1)
Quarter: 2025Q2

REPORT INFORMATION
  Report Type: Spontaneous
  Country: US (occurrence: US)
  Receive Date: 20250611
  Receipt Date: 20250611
  Transmission Date: 20250716
  Serious: No
  Sender: SANOFI AVENTIS
  Company Number: US-SA-2025SA165483

PATIENT
  Sex: Female

DRUGS (11)
  1. DUPIXENT [Suspect]
     Active Substance: DUPILUMAB
     Indication: Dermatitis atopic
     Dosage: 300 MG, QOW
     Route: 058
  2. ESTRADIOL [Concomitant]
     Active Substance: ESTRADIOL
  3. METOPROLOL SUCCINATE [Concomitant]
     Active Substance: METOPROLOL SUCCINATE
  4. MOUNJARO [Concomitant]
     Active Substance: TIRZEPATIDE
  5. TRAZODONE HCL [Concomitant]
     Active Substance: TRAZODONE HYDROCHLORIDE
  6. TRESIBA [Concomitant]
     Active Substance: INSULIN DEGLUDEC
  7. UNITHROID [Concomitant]
     Active Substance: LEVOTHYROXINE SODIUM
  8. XARELTO [Concomitant]
     Active Substance: RIVAROXABAN
  9. ESCITALOPRAM [Concomitant]
     Active Substance: ESCITALOPRAM OXALATE
  10. MONTELUKAST [Concomitant]
     Active Substance: MONTELUKAST
  11. ROSUVASTATIN [Concomitant]
     Active Substance: ROSUVASTATIN

REACTIONS (3)
  - Gastrointestinal disorder [Unknown]
  - Headache [Unknown]
  - Injection site pruritus [Unknown]
